FAERS Safety Report 4744087-5 (Version None)
Quarter: 2005Q3

REPORT INFORMATION
  Report Type: 
  Country: None (occurrence: None)
  Receive Date: 20050809
  Receipt Date: 20050729
  Transmission Date: 20060218
  Serious: Yes (Hospitalization)
  Sender: FDA-Public Use
  Company Number: 199057

PATIENT
  Age: 39 Year
  Sex: Female
  Weight: 86.1834 kg

DRUGS (9)
  1. AVONEX [Suspect]
     Indication: MULTIPLE SCLEROSIS
     Dosage: SEE IMAGE
     Route: 030
     Dates: start: 20030801, end: 20031201
  2. AVONEX [Suspect]
     Indication: MULTIPLE SCLEROSIS
     Dosage: SEE IMAGE
     Route: 030
     Dates: start: 20031201
  3. NORVASC [Concomitant]
  4. WELLBUTRIN [Concomitant]
  5. NEURONTIN [Concomitant]
  6. EFFEXOR [Concomitant]
  7. LAMICTAL [Concomitant]
  8. PROVIGIL [Concomitant]
  9. KLONOPIN [Concomitant]

REACTIONS (4)
  - CATHETER RELATED COMPLICATION [None]
  - DYSURIA [None]
  - INFLUENZA LIKE ILLNESS [None]
  - SLEEP DISORDER [None]
